FAERS Safety Report 5706674-7 (Version None)
Quarter: 2008Q2

REPORT INFORMATION
  Report Type: 
  Country: None (occurrence: None)
  Receive Date: 20080414
  Receipt Date: 20080414
  Transmission Date: 20081010
  Serious: Yes (Life-Threatening, Hospitalization)
  Sender: FDA-Public Use
  Company Number: None

PATIENT
  Age: 69 Year
  Sex: Female
  Weight: 87 kg

DRUGS (16)
  1. RANEXA [Suspect]
     Indication: ANGINA PECTORIS
     Dosage: 500MG BID PO
     Route: 048
  2. MELOXICAM [Concomitant]
  3. ALBUTEROL [Concomitant]
  4. ALPRAZOLAM [Concomitant]
  5. AMLODIPINE [Concomitant]
  6. NITROGLYCERIN [Concomitant]
  7. ATENOLOL [Concomitant]
  8. BUMEX [Concomitant]
  9. CIMETIDINE [Concomitant]
  10. IMDUR [Concomitant]
  11. PLAVIX [Concomitant]
  12. PROZAC [Concomitant]
  13. ATROVENT [Concomitant]
  14. POTASSIUM CHLORIDE [Concomitant]
  15. COZAAR [Concomitant]
  16. PROTONIX [Concomitant]

REACTIONS (3)
  - ELECTROCARDIOGRAM QT PROLONGED [None]
  - ELECTROCARDIOGRAM ST-T CHANGE [None]
  - VENTRICULAR TACHYCARDIA [None]
